FAERS Safety Report 8246595-1 (Version None)
Quarter: 2012Q1

REPORT INFORMATION
  Report Type: 
  Country: None (occurrence: None)
  Receive Date: 20120330
  Receipt Date: 20120322
  Transmission Date: 20120608
  Serious: Yes (Other)
  Sender: FDA-Public Use
  Company Number: BR-PFIZER INC-2012075059

PATIENT
  Age: 70 Year
  Sex: Female

DRUGS (2)
  1. LATANOPROST [Suspect]
     Indication: GLAUCOMA
     Route: 047
  2. XALATAN [Suspect]
     Indication: GLAUCOMA
     Dosage: UNSPECIFIED DOSE, ONCE DAILY
     Route: 047

REACTIONS (1)
  - DEPRESSION [None]
